FAERS Safety Report 6071072-6 (Version None)
Quarter: 2009Q1

REPORT INFORMATION
  Report Type: 
  Country: None (occurrence: None)
  Receive Date: 20090209
  Receipt Date: 20080827
  Transmission Date: 20090719
  Serious: No
  Sender: FDA-Public Use
  Company Number: A0744707A

PATIENT
  Age: 49 Year
  Sex: Male

DRUGS (5)
  1. PAROXETINE HCL [Suspect]
     Dosage: 12.5MG PER DAY
     Route: 048
     Dates: start: 20080805
  2. SYNTHROID [Concomitant]
  3. METFORMIN HCL [Concomitant]
  4. FLONASE [Concomitant]
  5. FLOVENT [Concomitant]

REACTIONS (3)
  - AGITATION [None]
  - MOOD SWINGS [None]
  - TENSION [None]
